FAERS Safety Report 11414765 (Version 1)
Quarter: 2015Q3

REPORT INFORMATION
  Report Type: Spontaneous
  Country: US (occurrence: None)
  Receive Date: 20150824
  Receipt Date: 20150824
  Transmission Date: 20151125
  Serious: Yes (Hospitalization)
  Sender: FDA-Public Use
  Company Number: None

PATIENT
  Age: 28 Year
  Sex: Female

DRUGS (5)
  1. PROPOFOL. [Suspect]
     Active Substance: PROPOFOL
     Indication: SEDATION
     Dosage: 15 MCG/KG/MIN 2.8/MG/MIN
     Route: 042
     Dates: start: 20150623, end: 20150624
  2. FAMOTIDINE. [Concomitant]
     Active Substance: FAMOTIDINE
  3. HEPARIN [Concomitant]
     Active Substance: HEPARIN SODIUM
  4. LORAZAPAM [Concomitant]
     Active Substance: LORAZEPAM
  5. ENOXAPARIN [Concomitant]
     Active Substance: ENOXAPARIN

REACTIONS (9)
  - Propofol infusion syndrome [None]
  - Haemoglobin decreased [None]
  - Blood creatinine increased [None]
  - Pulmonary embolism [None]
  - Acidosis [None]
  - Myocardial strain [None]
  - Dialysis [None]
  - Hypotension [None]
  - Multi-organ failure [None]

NARRATIVE: CASE EVENT DATE: 20150624
